FAERS Safety Report 8080042-8 (Version None)
Quarter: 2012Q1

REPORT INFORMATION
  Report Type: 
  Country: None (occurrence: None)
  Receive Date: 20120128
  Receipt Date: 20110725
  Transmission Date: 20120608
  Serious: No
  Sender: FDA-Public Use
  Company Number: US-ABBOTT-11P-163-0841353-00

PATIENT
  Sex: Female

DRUGS (2)
  1. FLUOXETINE [Concomitant]
     Indication: DRUG THERAPY
  2. HUMIRA [Suspect]
     Indication: PSORIASIS

REACTIONS (12)
  - EPISTAXIS [None]
  - SWELLING FACE [None]
  - MIDDLE EAR EFFUSION [None]
  - LYMPHADENOPATHY [None]
  - EAR INFECTION [None]
  - EAR PAIN [None]
  - OROPHARYNGEAL PAIN [None]
  - EAR HAEMORRHAGE [None]
  - OTITIS EXTERNA [None]
  - SINUSITIS [None]
  - HAEMOPTYSIS [None]
  - NASOPHARYNGITIS [None]
